FAERS Safety Report 4868807-4 (Version None)
Quarter: 2005Q4

REPORT INFORMATION
  Report Type: 
  Country: None (occurrence: None)
  Receive Date: 20051229
  Receipt Date: 20051219
  Transmission Date: 20060501
  Serious: Yes (Congenital Anomaly)
  Sender: FDA-Public Use
  Company Number: GB-ABBOTT-05P-167-0320219-00

PATIENT
  Sex: Male

DRUGS (4)
  1. VALPROATE SODIUM [Suspect]
     Indication: DRUG EXPOSURE DURING PREGNANCY
     Route: 065
  2. EPILIM CHRONO TDS [Suspect]
     Indication: DRUG EXPOSURE DURING PREGNANCY
     Route: 065
  3. LAMOTRIGINE [Suspect]
     Indication: DRUG EXPOSURE DURING PREGNANCY
     Route: 065
  4. SALBUTAMOL [Concomitant]
     Indication: INFECTION PROPHYLAXIS
     Route: 055

REACTIONS (21)
  - ABNORMAL BEHAVIOUR [None]
  - ANOTIA [None]
  - CONGENITAL ELEVATION OF SCAPULA [None]
  - CONGENITAL EYELID MALFORMATION [None]
  - CONGENITAL NOSE MALFORMATION [None]
  - CONGENITAL ORAL MALFORMATION [None]
  - CORNEAL REFLEX DECREASED [None]
  - DEVELOPMENTAL DELAY [None]
  - FACIAL DYSMORPHISM [None]
  - FALL [None]
  - FOETAL VALPROATE SYNDROME [None]
  - GROWTH OF EYELASHES [None]
  - HAIR GROWTH ABNORMAL [None]
  - HIRSUTISM [None]
  - HYPERACUSIS [None]
  - IMMUNE SYSTEM DISORDER [None]
  - MACROCEPHALY [None]
  - NAIL DISORDER [None]
  - SKULL MALFORMATION [None]
  - TOE DEFORMITY [None]
  - UNRESPONSIVE TO VERBAL STIMULI [None]
